FAERS Safety Report 14874793 (Version 2)
Quarter: 2018Q3

REPORT INFORMATION
  Report Type: Spontaneous
  Country: BY (occurrence: BY)
  Receive Date: 20180510
  Receipt Date: 20180723
  Transmission Date: 20181010
  Serious: Yes (Death, Other)
  Sender: FDA-Public Use
  Company Number: BY-SA-2018SA129540

PATIENT
  Age: 20 Year
  Sex: Female
  Weight: 52 kg

DRUGS (9)
  1. KEPPRA [Concomitant]
     Active Substance: LEVETIRACETAM
  2. FUROSEMIDE. [Concomitant]
     Active Substance: FUROSEMIDE
  3. ROCALTROL [Concomitant]
     Active Substance: CALCITRIOL
  4. LAMOTRIGINE. [Concomitant]
     Active Substance: LAMOTRIGINE
  5. CEREZYME [Suspect]
     Active Substance: IMIGLUCERASE
     Indication: GAUCHER^S DISEASE TYPE III
     Dosage: UNK UNK,QOW
     Route: 041
     Dates: start: 20030221
  6. AMBROXOL [Concomitant]
     Active Substance: AMBROXOL
     Dosage: UNK UNK,UNK
     Route: 065
     Dates: end: 201804
  7. CALCIUM [Concomitant]
     Active Substance: CALCIUM
  8. BACLOFEN. [Concomitant]
     Active Substance: BACLOFEN
  9. ASPARCAM L [Concomitant]

REACTIONS (29)
  - Disease progression [Fatal]
  - Subarachnoid haemorrhage [Unknown]
  - Umbilical hernia [Unknown]
  - Goitre [Unknown]
  - Upper motor neurone lesion [Unknown]
  - Paraparesis [Unknown]
  - Portal hypertension [Unknown]
  - Multiple organ dysfunction syndrome [Unknown]
  - Oesophageal varices haemorrhage [Unknown]
  - Epilepsy [Unknown]
  - Joint contracture [Unknown]
  - Bone density decreased [Unknown]
  - Lymphadenopathy [Unknown]
  - Gammopathy [Unknown]
  - Vitamin D deficiency [Unknown]
  - Condition aggravated [Unknown]
  - Scoliosis [Unknown]
  - Hepatic fibrosis [Unknown]
  - Epileptic encephalopathy [Unknown]
  - Portal hypertensive gastropathy [Unknown]
  - Condition aggravated [Unknown]
  - Osteoporosis [Unknown]
  - Gait disturbance [Unknown]
  - Ascites [Unknown]
  - Splenic fibrosis [Unknown]
  - Hypoparathyroidism [Unknown]
  - Kyphosis [Unknown]
  - IIIrd nerve paresis [Unknown]
  - Extrapyramidal disorder [Unknown]

NARRATIVE: CASE EVENT DATE: 2003
